FAERS Safety Report 18899651 (Version 2)
Quarter: 2021Q1

REPORT INFORMATION
  Report Type: Report from Study
  Country: CR (occurrence: CR)
  Receive Date: 20210216
  Receipt Date: 20210319
  Transmission Date: 20210420
  Serious: Yes (Other)
  Sender: FDA-Public Use
  Company Number: NVSC2021CR031156

PATIENT
  Age: 77 Year
  Sex: Male

DRUGS (1)
  1. CO?DIOVAN [Suspect]
     Active Substance: HYDROCHLOROTHIAZIDE\VALSARTAN
     Indication: HYPERTENSION
     Dosage: 80/12.5 MG (10 YEARS AGO APPROXIMATELY)
     Route: 065

REACTIONS (3)
  - Depressed mood [Unknown]
  - Blood pressure increased [Unknown]
  - Amnesia [Unknown]
